FAERS Safety Report 5841095-8 (Version None)
Quarter: 2008Q3

REPORT INFORMATION
  Report Type: 
  Country: None (occurrence: None)
  Receive Date: 20080811
  Receipt Date: 20080811
  Transmission Date: 20090109
  Serious: Yes (Other)
  Sender: FDA-Public Use
  Company Number: None

PATIENT
  Age: 12 Year
  Sex: Male
  Weight: 26.7622 kg

DRUGS (2)
  1. RISPERIDONE [Suspect]
     Indication: AGGRESSION
     Dosage: 0.5MG/1MG/1MG DAILY PO
     Route: 048
     Dates: start: 20080725, end: 20080727
  2. RISPERIDONE [Suspect]
     Indication: AUTISM
     Dosage: 0.5MG/1MG/1MG DAILY PO
     Route: 048
     Dates: start: 20080725, end: 20080727

REACTIONS (1)
  - HEAD TITUBATION [None]
